FAERS Safety Report 9160121 (Version 2)
Quarter: 2013Q2

REPORT INFORMATION
  Report Type: Report from Study
  Country: BE (occurrence: BE)
  Receive Date: 20130313
  Receipt Date: 20130409
  Transmission Date: 20140414
  Serious: Yes (Hospitalization)
  Sender: FDA-Public Use
  Company Number: BE-ROCHE-1075877

PATIENT
  Age: 62 Year
  Sex: Female
  Weight: 67.5 kg

DRUGS (30)
  1. BEVACIZUMAB [Suspect]
     Indication: COLORECTAL CANCER METASTATIC
     Dosage: DOSE OF LAST BEVACIZUMAB TAKEN:346 MG, DATE OF MOST RECENT DOSE OF BEVACIZUMAB WAS  27/NOV/2012
     Route: 042
     Dates: start: 20120321
  2. OXALIPLATIN [Suspect]
     Indication: COLORECTAL CANCER METASTATIC
     Dosage: DOSE OF LAST OXALIPLATIN TAKEN:146 MG, DATE OF MOST RECENT DOSE OF OXALIPLATIN WAS 3/JUL/2012
     Route: 042
     Dates: start: 20120321, end: 20120703
  3. FOLINIC ACID [Suspect]
     Indication: COLORECTAL CANCER METASTATIC
     Dosage: DOSE OF LAST FOLINIC ACID TAKEN:677 MG, DATE OF MOST RECENT DOSE OF FOLINIC ACID WAS  27/NOV/2012
     Route: 042
     Dates: start: 20120321
  4. FLUOROURACIL [Suspect]
     Indication: COLORECTAL CANCER METASTATIC
     Dosage: DOSE OF LAST FLUOROURACIL BOLUS TAKEN:677 MG , DATE OF MOST RECENT DOSE OF FLUOROURACIL WAS 27/NOV/2
     Route: 040
     Dates: start: 20120321
  5. FLUOROURACIL [Suspect]
     Dosage: DOSE OF LAST FLUOROURACIL INFUSION TAKEN:4063.54 MG AND  DATE OF MOST RECENT DOSE OF FLUOROURACIL WA
     Route: 042
     Dates: start: 20120321
  6. AACIDEXAM [Concomitant]
     Indication: NAUSEA
     Route: 042
     Dates: start: 20120321, end: 20120725
  7. AACIDEXAM [Concomitant]
     Indication: VOMITING
  8. ZOFRAN [Concomitant]
     Indication: NAUSEA
     Route: 042
     Dates: start: 20120321
  9. ZOFRAN [Concomitant]
     Indication: VOMITING
  10. EMEND [Concomitant]
     Indication: NAUSEA
     Dosage: 3 CAPSULES
     Route: 048
     Dates: start: 20120425
  11. EMEND [Concomitant]
     Indication: VOMITING
  12. COVERSYL [Concomitant]
     Route: 048
     Dates: start: 20120530
  13. PANTOMED [Concomitant]
     Indication: PROPHYLAXIS AGAINST GASTROINTESTINAL ULCER
     Route: 048
  14. SOTALEX [Concomitant]
     Indication: ARRHYTHMIA
     Route: 048
     Dates: start: 20121002
  15. SPASMOMEN [Concomitant]
     Indication: MUSCLE SPASMS
     Route: 048
     Dates: start: 20120719
  16. BETNELAN V [Concomitant]
     Indication: HYPERSENSITIVITY
     Route: 061
     Dates: start: 20120524
  17. RUPATALL [Concomitant]
     Indication: DERMATITIS ALLERGIC
     Route: 048
     Dates: start: 20120524
  18. MOVICOL [Concomitant]
     Indication: CONSTIPATION
     Route: 048
     Dates: start: 20120326
  19. IMODIUM [Concomitant]
     Indication: DIARRHOEA
     Route: 048
     Dates: start: 20120402
  20. MOTILIUM (BELGIUM) [Concomitant]
     Indication: NAUSEA
     Route: 048
     Dates: start: 20120418
  21. LITICAN [Concomitant]
     Indication: NAUSEA
     Route: 048
     Dates: start: 20120418
  22. PERIO-AID [Concomitant]
     Indication: STOMATITIS
     Route: 048
     Dates: start: 20120509, end: 20120719
  23. CETOMACROGOL [Concomitant]
     Indication: INTRA-ABDOMINAL HAEMATOMA
     Route: 061
     Dates: start: 20120509, end: 20120524
  24. ATARAX [Concomitant]
     Indication: DERMATITIS ALLERGIC
     Route: 048
     Dates: start: 20120509, end: 20120524
  25. CLEXANE [Concomitant]
     Indication: THROMBOSIS
     Route: 065
     Dates: start: 20120328
  26. TRAVOCORT [Concomitant]
     Indication: ECZEMA
     Route: 061
     Dates: start: 20121113, end: 20121120
  27. SOTALEX [Concomitant]
     Indication: ARRHYTHMIA
     Route: 048
     Dates: start: 20121003
  28. AMLOR [Concomitant]
     Indication: HYPERTENSION
     Route: 048
     Dates: start: 20121003
  29. METFORMIN [Concomitant]
     Indication: HYPERGLYCAEMIA
     Route: 048
     Dates: start: 20120703
  30. MEGF0444A [Suspect]
     Indication: COLORECTAL CANCER METASTATIC
     Dosage: DATE OF MOST RECENT DOSE OF BLINDED MEGF0444A WAS 27/NOV/2012
     Route: 042
     Dates: start: 20120321

REACTIONS (1)
  - Atrial fibrillation [Recovered/Resolved]
